FAERS Safety Report 25626303 (Version 1)
Quarter: 2025Q3

REPORT INFORMATION
  Report Type: Report from Study
  Country: US (occurrence: US)
  Receive Date: 20250731
  Receipt Date: 20250731
  Transmission Date: 20251021
  Serious: Yes (Other)
  Sender: Unknown Manufacturer
  Company Number: US-RHYTHM PHARMACEUTICALS, INC.-2024RHM000290

PATIENT

DRUGS (7)
  1. SETMELANOTIDE [Suspect]
     Active Substance: SETMELANOTIDE
     Indication: Laurence-Moon-Bardet-Biedl syndrome
     Dosage: 3 MILLIGRAM, QD
     Route: 058
     Dates: start: 20240423
  2. Fish Oil High Potency [Concomitant]
     Indication: Product used for unknown indication
     Route: 065
  3. Multivitamins/Minerals (with AE, No Iron), [Concomitant]
     Indication: Product used for unknown indication
     Route: 065
  4. DIETARY SUPPLEMENT [Concomitant]
     Active Substance: DIETARY SUPPLEMENT
     Indication: Product used for unknown indication
     Route: 065
  5. VITAMIN D3 [Concomitant]
     Active Substance: CHOLECALCIFEROL
     Indication: Product used for unknown indication
     Route: 065
  6. IBUPROFEN [Concomitant]
     Active Substance: IBUPROFEN
     Indication: Product used for unknown indication
  7. MOUNJARO [Concomitant]
     Active Substance: TIRZEPATIDE
     Indication: Product used for unknown indication

REACTIONS (12)
  - Urinary retention [Recovered/Resolved]
  - Drug ineffective [Not Recovered/Not Resolved]
  - Weight loss poor [Not Recovered/Not Resolved]
  - Weight increased [Not Recovered/Not Resolved]
  - Ephelides [Not Recovered/Not Resolved]
  - Melanocytic naevus [Not Recovered/Not Resolved]
  - Injection site nodule [Not Recovered/Not Resolved]
  - Injection site pruritus [Not Recovered/Not Resolved]
  - Injection site pain [Not Recovered/Not Resolved]
  - Pigmentation disorder [Not Recovered/Not Resolved]
  - Spontaneous penile erection [Not Recovered/Not Resolved]
  - Skin discolouration [Not Recovered/Not Resolved]

NARRATIVE: CASE EVENT DATE: 20240501
